FAERS Safety Report 6577659-6 (Version None)
Quarter: 2010Q1

REPORT INFORMATION
  Report Type: 
  Country: None (occurrence: None)
  Receive Date: 20100211
  Receipt Date: 20100202
  Transmission Date: 20100710
  Serious: Yes (Hospitalization, Other)
  Sender: FDA-Public Use
  Company Number: PHHY2009BR42233

PATIENT
  Sex: Female

DRUGS (5)
  1. FORADIL [Suspect]
     Indication: ASTHMA
     Dosage: UNK
  2. FORASEQ [Suspect]
     Indication: ASTHMA
     Dosage: 12/400MCG 60/60
     Dates: start: 20090929
  3. LORATADINE [Concomitant]
     Dosage: UNK
     Dates: start: 20090922
  4. AEROLIN [Concomitant]
     Dosage: UNK
  5. NEOX [Concomitant]
     Dosage: UNK
     Dates: start: 20090922

REACTIONS (6)
  - ASTHMA [None]
  - CAESAREAN SECTION [None]
  - DRUG EXPOSURE DURING PREGNANCY [None]
  - DYSPNOEA [None]
  - NORMAL NEWBORN [None]
  - RHINITIS [None]
